FAERS Safety Report 23576672 (Version 1)
Quarter: 2024Q1

REPORT INFORMATION
  Report Type: Report from Study
  Country: AU (occurrence: AU)
  Receive Date: 20240228
  Receipt Date: 20240228
  Transmission Date: 20240409
  Serious: Yes (Other)
  Sender: FDA-Public Use
  Company Number: AU-002147023-NVSC2024AU038707

PATIENT
  Sex: Male

DRUGS (1)
  1. LEQVIO [Suspect]
     Active Substance: INCLISIRAN SODIUM
     Indication: Product used for unknown indication
     Dosage: 284 MG
     Route: 058

REACTIONS (6)
  - Erectile dysfunction [Recovering/Resolving]
  - Lethargy [Recovering/Resolving]
  - Upper-airway cough syndrome [Recovering/Resolving]
  - Myalgia [Recovering/Resolving]
  - Rhinorrhoea [Recovering/Resolving]
  - Rash [Recovering/Resolving]
